FAERS Safety Report 9266582 (Version 2)
Quarter: 2013Q3

REPORT INFORMATION
  Report Type: Other
  Country: BR (occurrence: BR)
  Receive Date: 20130502
  Receipt Date: 20130701
  Transmission Date: 20140515
  Serious: No
  Sender: FDA-Public Use
  Company Number: PHHY2013BR041460

PATIENT
  Sex: Male

DRUGS (1)
  1. DIOVAN TRIPLE [Suspect]
     Dosage: UNK UKN, UNK

REACTIONS (1)
  - No adverse event [Unknown]
